FAERS Safety Report 19858010 (Version 2)
Quarter: 2021Q3

REPORT INFORMATION
  Report Type: Spontaneous
  Country: MT (occurrence: MT)
  Receive Date: 20210921
  Receipt Date: 20210929
  Transmission Date: 20211014
  Serious: Yes (Other)
  Sender: FDA-Public Use
  Company Number: MT-BIO PRODUCTS LABORATORY LTD-2118594

PATIENT

DRUGS (5)
  1. METHYLPREDNISOLONE. [Suspect]
     Active Substance: METHYLPREDNISOLONE
  2. INFLIXIMAB [Suspect]
     Active Substance: INFLIXIMAB
  3. AZATHIOPRINE. [Suspect]
     Active Substance: AZATHIOPRINE
  4. CYCLOPHOSPHAMIDE. [Suspect]
     Active Substance: CYCLOPHOSPHAMIDE
  5. HUMAN NORMAL IMMUNOGLOBULIN [Suspect]
     Active Substance: HUMAN IMMUNOGLOBULIN G
     Indication: KAWASAKI^S DISEASE
     Route: 042

REACTIONS (3)
  - Therapy non-responder [Unknown]
  - No adverse event [Unknown]
  - Off label use [Unknown]
